FAERS Safety Report 15979914 (Version 1)
Quarter: 2019Q1

REPORT INFORMATION
  Report Type: Spontaneous
  Country: FR (occurrence: FR)
  Receive Date: 20190219
  Receipt Date: 20190219
  Transmission Date: 20190418
  Serious: Yes (Hospitalization)
  Sender: FDA-Public Use
  Company Number: FR-ACCORD-107923

PATIENT
  Age: 47 Year
  Sex: Male

DRUGS (4)
  1. IFOSFAMIDE EG [Suspect]
     Active Substance: IFOSFAMIDE
     Indication: TESTIS CANCER
     Dosage: 2 CURES
     Route: 042
     Dates: start: 20180417, end: 20180518
  2. CISPLATINE ACCORD [Suspect]
     Active Substance: CISPLATIN
     Indication: TESTIS CANCER
     Dosage: 2 CURES
     Route: 042
     Dates: start: 20180417, end: 20180518
  3. UROMITEXAN [Suspect]
     Active Substance: MESNA
     Indication: CHEMOTHERAPY UROTHELIAL TOXICITY ATTENUATION
     Dosage: 2 CURES
     Route: 042
     Dates: start: 20180417, end: 20180518
  4. PACLITAXEL KABI [Suspect]
     Active Substance: PACLITAXEL
     Indication: TESTIS CANCER
     Dosage: 2 INJECTIONS DE 490 MG
     Route: 042
     Dates: start: 20180416, end: 20180514

REACTIONS (2)
  - Enterocolitis [Recovered/Resolved]
  - Pancytopenia [Recovered/Resolved]

NARRATIVE: CASE EVENT DATE: 20180524
